FAERS Safety Report 6144717-X (Version None)
Quarter: 2009Q2

REPORT INFORMATION
  Report Type: 
  Country: None (occurrence: None)
  Receive Date: 20090406
  Receipt Date: 20090326
  Transmission Date: 20091009
  Serious: Yes (Hospitalization, Other)
  Sender: FDA-Public Use
  Company Number: US-JNJFOC-20090307155

PATIENT
  Age: 71 Year
  Sex: Male

DRUGS (15)
  1. REMICADE [Suspect]
     Indication: PSORIATIC ARTHROPATHY
     Route: 042
  2. METHOTREXATE [Concomitant]
  3. NEXIUM [Concomitant]
  4. VOLARIN [Concomitant]
     Indication: ARTHRITIS
  5. PREDNISONE [Concomitant]
  6. FOLIC ACID [Concomitant]
  7. LISINOPRIL [Concomitant]
  8. ZOLOFT [Concomitant]
  9. ISTALOL [Concomitant]
  10. XALATAN [Concomitant]
  11. VITAMIN [Concomitant]
  12. CALCIUM [Concomitant]
  13. ASCORBIC ACID [Concomitant]
  14. VITAMIN D [Concomitant]
  15. FISH OIL [Concomitant]

REACTIONS (2)
  - DEEP VEIN THROMBOSIS [None]
  - MULTIPLE MYELOMA [None]
